FAERS Safety Report 14544325 (Version 1)
Quarter: 2018Q1

REPORT INFORMATION
  Report Type: Spontaneous
  Country: US (occurrence: US)
  Receive Date: 20180215
  Receipt Date: 20180215
  Transmission Date: 20180509
  Serious: Yes (Death)
  Sender: FDA-Public Use
  Company Number: None

PATIENT
  Age: 76 Year
  Sex: Female

DRUGS (3)
  1. CAPECITABINE 500MG TAB [Suspect]
     Active Substance: CAPECITABINE
     Indication: BREAST CANCER
     Dosage: DOSE - 1500MG 14 DS OF 21DAY CYC
     Route: 048
     Dates: start: 20180109, end: 201802
  2. HERCEPTIN [Concomitant]
     Active Substance: TRASTUZUMAB
  3. DEXAMETHASON [Concomitant]
     Active Substance: DEXAMETHASONE

REACTIONS (5)
  - Pancytopenia [None]
  - Colitis [None]
  - Diarrhoea [None]
  - Stomatitis [None]
  - Dehydration [None]

NARRATIVE: CASE EVENT DATE: 20180210
